FAERS Safety Report 5593033-3 (Version None)
Quarter: 2008Q1

REPORT INFORMATION
  Report Type: 
  Country: None (occurrence: None)
  Receive Date: 20080116
  Receipt Date: 20080109
  Transmission Date: 20080703
  Serious: Yes (Death)
  Sender: FDA-Public Use
  Company Number: US-JNJFOC-20071005581

PATIENT
  Sex: Female
  Weight: 78.93 kg

DRUGS (6)
  1. IMODIUM A-D [Suspect]
  2. IMODIUM A-D [Suspect]
     Indication: DIARRHOEA
  3. SULFAMETHOXAZOLE AND TRIMETHOPRIM [Suspect]
     Indication: URINARY TRACT INFECTION
  4. CIPRO [Concomitant]
  5. AMPICILLIN [Concomitant]
  6. GENTAMICIN [Concomitant]

REACTIONS (3)
  - CLOSTRIDIUM DIFFICILE COLITIS [None]
  - MULTI-ORGAN FAILURE [None]
  - SEPTIC SHOCK [None]
